FAERS Safety Report 19971700 (Version 2)
Quarter: 2022Q2

REPORT INFORMATION
  Report Type: Other
  Country: KR (occurrence: None)
  Receive Date: 20211020
  Receipt Date: 20220423
  Transmission Date: 20220721
  Serious: Yes (Hospitalization)
  Sender: FDA-Public Use
  Company Number: KR-ROCHE-2935031

PATIENT
  Age: 50 Year
  Sex: Male
  Weight: 81.9 kg

DRUGS (7)
  1. ATEZOLIZUMAB [Suspect]
     Active Substance: ATEZOLIZUMAB
     Indication: Hepatocellular carcinoma
     Dosage: SUBSEQUENT DOSE ON 12/OCT/2021
     Route: 042
     Dates: start: 20210914
  2. BEVACIZUMAB [Suspect]
     Active Substance: BEVACIZUMAB
     Indication: Hepatocellular carcinoma
     Dosage: SUBSEQUENT DOSE ON 12/OCT/2021
     Route: 042
     Dates: start: 20210914
  3. TWYNSTA [Concomitant]
     Active Substance: AMLODIPINE BESYLATE\TELMISARTAN
     Indication: Hypertension
     Dosage: TAB 80/5 MG
     Route: 048
     Dates: start: 202107
  4. OXYCODONE HYDROCHLORIDE [Concomitant]
     Active Substance: OXYCODONE HYDROCHLORIDE
     Indication: Cancer pain
     Route: 048
     Dates: start: 20210913
  5. NALOXONE HYDROCHLORIDE\OXYCODONE HYDROCHLORIDE [Concomitant]
     Active Substance: NALOXONE HYDROCHLORIDE\OXYCODONE HYDROCHLORIDE
     Indication: Cancer pain
     Dosage: TAB 10/5 MG, 1 TAB
     Route: 048
     Dates: start: 20210913
  6. MYPOL (SOUTH KOREA) [Concomitant]
     Indication: Cancer pain
     Dosage: 1 CAPSULE
     Route: 048
     Dates: start: 20211008
  7. MEGACEF (SOUTH KOREA) [Concomitant]
     Indication: Decreased appetite
     Dosage: 625 M G /5 M L
     Route: 048
     Dates: start: 20211008

REACTIONS (1)
  - Haematochezia [Recovered/Resolved]

NARRATIVE: CASE EVENT DATE: 20210928
